FAERS Safety Report 8277124-4 (Version None)
Quarter: 2012Q2

REPORT INFORMATION
  Report Type: 
  Country: None (occurrence: None)
  Receive Date: 20120412
  Receipt Date: 20120405
  Transmission Date: 20120825
  Serious: Yes (Hospitalization)
  Sender: FDA-Public Use
  Company Number: SE-ASTRAZENECA-2012SE22646

PATIENT
  Age: 85 Year
  Sex: Male

DRUGS (9)
  1. RAMIPRIL [Concomitant]
  2. AMOXICILLIN [Concomitant]
  3. LIPITOR [Concomitant]
  4. METFORMIN HCL [Concomitant]
  5. METOPROLOL TARTRATE [Concomitant]
     Route: 048
  6. SPIRONOLACTONE [Concomitant]
  7. IMDUR [Concomitant]
     Route: 048
  8. BRILIQUE [Suspect]
     Route: 048
     Dates: start: 20120122, end: 20120222
  9. FUROSEMIDE [Concomitant]

REACTIONS (1)
  - GASTRITIS [None]
